FAERS Safety Report 7675368-3 (Version None)
Quarter: 2011Q3

REPORT INFORMATION
  Report Type: 
  Country: None (occurrence: None)
  Receive Date: 20110810
  Receipt Date: 20100112
  Transmission Date: 20111222
  Serious: Yes (Hospitalization, Other)
  Sender: FDA-Public Use
  Company Number: GB-MYLANLABS-2010S1000472

PATIENT
  Age: 2 Year
  Sex: Male

DRUGS (1)
  1. PROPRANOLOL [Suspect]
     Indication: ELECTROCARDIOGRAM QT PROLONGED
     Route: 048

REACTIONS (1)
  - HYPOGLYCAEMIC UNCONSCIOUSNESS [None]
